FAERS Safety Report 7776629 (Version 2)
Quarter: 2013Q1

REPORT INFORMATION
  Report Type: Spontaneous
  Country: US (occurrence: US)
  Receive Date: 20110127
  Receipt Date: 20130102
  Transmission Date: 20140127
  Serious: Yes (Hospitalization, Other)
  Sender: FDA-Public Use
  Company Number: US-PFIZER INC-2011013174

PATIENT
  Age: 28 Year
  Sex: Male

DRUGS (3)
  1. DILANTIN [Suspect]
     Indication: CONVULSION
     Dosage: THREE TABLETS (300 MG) AT BED TIME
     Route: 048
     Dates: start: 20071109
  2. DILANTIN [Suspect]
     Indication: CONVULSION
     Dosage: 100 MG, 3X/DAY
     Route: 042
     Dates: start: 20080708
  3. DILANTIN KAPSEAL [Suspect]
     Indication: CONVULSION
     Dosage: 400 MG ONCE DAILY
     Route: 048
     Dates: start: 20090204

REACTIONS (1)
  - Stevens-Johnson syndrome [Unknown]
